FAERS Safety Report 6160039-5 (Version None)
Quarter: 2009Q2

REPORT INFORMATION
  Report Type: 
  Country: None (occurrence: None)
  Receive Date: 20090420
  Receipt Date: 20090409
  Transmission Date: 20091009
  Serious: Yes (Life-Threatening, Hospitalization, Other)
  Sender: FDA-Public Use
  Company Number: US-BAYER-200915226NA

PATIENT
  Age: 71 Year
  Sex: Male
  Weight: 102 kg

DRUGS (8)
  1. AVELOX [Suspect]
     Indication: SINUSITIS
     Dosage: TOTAL DAILY DOSE: 400 MG  UNIT DOSE: 400 MG
     Route: 048
     Dates: start: 20090310
  2. AVELOX [Suspect]
     Dates: start: 20090204
  3. LASIX [Concomitant]
  4. INSULIN [Concomitant]
  5. TRICOR [Concomitant]
  6. ASPIRIN [Concomitant]
  7. PLAVIX [Concomitant]
  8. MONOPRIL [Concomitant]

REACTIONS (3)
  - ANAPHYLACTIC REACTION [None]
  - OBSTRUCTIVE AIRWAYS DISORDER [None]
  - SWOLLEN TONGUE [None]
